FAERS Safety Report 6555621-7 (Version None)
Quarter: 2010Q1

REPORT INFORMATION
  Report Type: 
  Country: None (occurrence: None)
  Receive Date: 20100128
  Receipt Date: 20100116
  Transmission Date: 20100710
  Serious: Yes (Other)
  Sender: FDA-Public Use
  Company Number: US-BAYER-201013109GPV

PATIENT
  Age: 53 Year
  Sex: Male

DRUGS (6)
  1. SORAFENIB [Suspect]
     Indication: HEPATIC NEOPLASM MALIGNANT
  2. SORAFENIB [Suspect]
     Dosage: TOTAL DAILY DOSE: 400 MG
  3. ANTIBIOTICS [Concomitant]
     Indication: PERITONITIS BACTERIAL
  4. RED BLOOD CELLS [Concomitant]
     Indication: HAEMORRHAGE
  5. FRESH FROZEN PLASMA [Concomitant]
     Indication: HAEMORRHAGE
  6. PLATELETS [Concomitant]
     Indication: HAEMORRHAGE

REACTIONS (3)
  - PALMAR-PLANTAR ERYTHRODYSAESTHESIA SYNDROME [None]
  - PANCREATITIS [None]
  - RASH [None]
